FAERS Safety Report 5375364-5 (Version None)
Quarter: 2007Q2

REPORT INFORMATION
  Report Type: 
  Country: None (occurrence: None)
  Receive Date: 20070629
  Receipt Date: 20070529
  Transmission Date: 20071010
  Serious: Yes (Other)
  Sender: FDA-Public Use
  Company Number: GB-AMGEN-US231727

PATIENT
  Sex: Female
  Weight: 88 kg

DRUGS (3)
  1. ENBREL [Suspect]
     Indication: RHEUMATOID ARTHRITIS
     Route: 058
     Dates: start: 20030615
  2. DICLOFENAC [Concomitant]
     Dosage: UNKNOWN
  3. CODEINE PHOSPHATE AND ACETAMINOPHEN [Concomitant]
     Dosage: UNKNOWN

REACTIONS (1)
  - ABORTION SPONTANEOUS [None]
